FAERS Safety Report 16470726 (Version 1)
Quarter: 2019Q2

REPORT INFORMATION
  Report Type: Spontaneous
  Country: US (occurrence: US)
  Receive Date: 20190624
  Receipt Date: 20190624
  Transmission Date: 20190711
  Serious: No
  Sender: FDA-Public Use
  Company Number: US-CATALYST PHARMACEUTICALS, INC-2019CAT00107

PATIENT
  Age: 64 Year
  Sex: Male
  Weight: 82.54 kg

DRUGS (7)
  1. MESTINON [Concomitant]
     Active Substance: PYRIDOSTIGMINE BROMIDE
  2. PREDNISONE. [Suspect]
     Active Substance: PREDNISONE
     Indication: ARTHROPATHY
     Dosage: 20 MG
  3. FLUTICASONE. [Concomitant]
     Active Substance: FLUTICASONE
  4. LISINOPRIL. [Concomitant]
     Active Substance: LISINOPRIL
  5. OMEPRAZOLE. [Concomitant]
     Active Substance: OMEPRAZOLE
  6. FIRDAPSE [Suspect]
     Active Substance: AMIFAMPRIDINE
     Indication: MYASTHENIC SYNDROME
     Dosage: 20 MG, 4X/DAY
     Route: 048
     Dates: start: 201903
  7. PREDNISONE. [Suspect]
     Active Substance: PREDNISONE
     Dosage: 10 MG

REACTIONS (1)
  - Tinnitus [Not Recovered/Not Resolved]

NARRATIVE: CASE EVENT DATE: 201903
